FAERS Safety Report 23387881 (Version 2)
Quarter: 2024Q1

REPORT INFORMATION
  Report Type: Spontaneous
  Country: FR (occurrence: FR)
  Receive Date: 20240110
  Receipt Date: 20240115
  Transmission Date: 20240409
  Serious: Yes (Other)
  Sender: FDA-Public Use
  Company Number: FR-JAZZ PHARMACEUTICALS-2024-FR-000393

PATIENT

DRUGS (1)
  1. DEFITELIO [Suspect]
     Active Substance: DEFIBROTIDE SODIUM
     Indication: Product used for unknown indication

REACTIONS (6)
  - Thrombocytopenia [Unknown]
  - Hyperbilirubinaemia [Unknown]
  - Venoocclusive disease [Unknown]
  - Coagulopathy [Unknown]
  - Weight increased [Unknown]
  - Coagulation factor V level decreased [Unknown]
